FAERS Safety Report 21465740 (Version 1)
Quarter: 2022Q4

REPORT INFORMATION
  Report Type: Spontaneous
  Country: US (occurrence: US)
  Receive Date: 20221017
  Receipt Date: 20221017
  Transmission Date: 20230113
  Serious: No
  Sender: FDA-Public Use
  Company Number: US-PFIZER INC-202201230025

PATIENT
  Age: 83 Year
  Sex: Male
  Weight: 83.01 kg

DRUGS (2)
  1. VYNDAQEL [Suspect]
     Active Substance: TAFAMIDIS MEGLUMINE
     Indication: Familial amyloidosis
     Dosage: TOOK 1 PILL, FOR 3 DAYS, FRIDAY, SATURDAY, SUNDAY, LAST WEEK
     Dates: start: 20221007, end: 20221009
  2. VYNDAQEL [Suspect]
     Active Substance: TAFAMIDIS MEGLUMINE
     Dosage: MONDAY, TUESDAY, WEDNESDAY, TOOK 4 PILLS A DAY
     Dates: start: 20221010

REACTIONS (2)
  - Therapeutic response unexpected [Unknown]
  - Off label use [Unknown]

NARRATIVE: CASE EVENT DATE: 20221007
